FAERS Safety Report 9621052 (Version 1)
Quarter: 2013Q4

REPORT INFORMATION
  Report Type: Spontaneous
  Country: US (occurrence: US)
  Receive Date: 20131015
  Receipt Date: 20131015
  Transmission Date: 20140711
  Serious: No
  Sender: FDA-Public Use
  Company Number: US-TEVA-437769USA

PATIENT
  Sex: Male

DRUGS (3)
  1. NUVIGIL [Suspect]
     Indication: NARCOLEPSY
     Route: 048
     Dates: start: 20131007
  2. CAFFEINE [Concomitant]
     Indication: NARCOLEPSY
  3. STIMULANT [Concomitant]
     Indication: NARCOLEPSY

REACTIONS (7)
  - Dizziness [Recovered/Resolved]
  - Eyelid disorder [Recovered/Resolved]
  - Somnolence [Recovered/Resolved]
  - Fatigue [Recovered/Resolved]
  - Somnolence [Not Recovered/Not Resolved]
  - Asthenia [Not Recovered/Not Resolved]
  - Intentional drug misuse [Not Recovered/Not Resolved]
